FAERS Safety Report 13062045 (Version 1)
Quarter: 2016Q4

REPORT INFORMATION
  Report Type: Report from Study
  Country: US (occurrence: US)
  Receive Date: 20161226
  Receipt Date: 20161226
  Transmission Date: 20170207
  Serious: Yes (Other)
  Sender: FDA-Public Use
  Company Number: US-AMGEN-USASL2016179371

PATIENT
  Age: 76 Year
  Sex: Female

DRUGS (1)
  1. PROLIA [Suspect]
     Active Substance: DENOSUMAB
     Indication: OSTEOPOROSIS
     Dosage: UNK
     Route: 065

REACTIONS (7)
  - Exposed bone in jaw [Recovering/Resolving]
  - Balance disorder [Unknown]
  - Arthralgia [Unknown]
  - Impaired healing [Recovering/Resolving]
  - Tooth fracture [Unknown]
  - Fall [Unknown]
  - Tooth extraction [Unknown]

NARRATIVE: CASE EVENT DATE: 2015
